FAERS Safety Report 8458256-4 (Version None)
Quarter: 2012Q2

REPORT INFORMATION
  Report Type: 
  Country: None (occurrence: None)
  Receive Date: 20120622
  Receipt Date: 20120619
  Transmission Date: 20120825
  Serious: No
  Sender: FDA-Public Use
  Company Number: US-TEVA-344278USA

PATIENT
  Sex: Female

DRUGS (2)
  1. NUVIGIL [Suspect]
     Route: 048
  2. PANTOPRAZOLE [Concomitant]

REACTIONS (2)
  - MALAISE [None]
  - COUGH [None]
